FAERS Safety Report 9644261 (Version 1)
Quarter: 2013Q4

REPORT INFORMATION
  Report Type: Spontaneous
  Country: US (occurrence: US)
  Receive Date: 20131025
  Receipt Date: 20131025
  Transmission Date: 20140711
  Serious: Yes (Hospitalization)
  Sender: FDA-Public Use
  Company Number: US-PFIZER INC-2013302146

PATIENT
  Age: 14 Month
  Sex: Male

DRUGS (1)
  1. METAXALONE [Suspect]
     Dosage: 1600 MG, SINGLE
     Route: 048

REACTIONS (9)
  - Overdose [Unknown]
  - Convulsion [Unknown]
  - Ataxia [Not Recovered/Not Resolved]
  - Abnormal behaviour [Unknown]
  - Mydriasis [Not Recovered/Not Resolved]
  - Trismus [Unknown]
  - Musculoskeletal stiffness [Recovered/Resolved]
  - Hypertension [Unknown]
  - Tachycardia [Unknown]
